FAERS Safety Report 24665814 (Version 1)
Quarter: 2024Q4

REPORT INFORMATION
  Report Type: Spontaneous
  Country: US (occurrence: None)
  Receive Date: 20241126
  Receipt Date: 20241126
  Transmission Date: 20250114
  Serious: No
  Sender: Public
  Company Number: None

PATIENT
  Sex: Female

DRUGS (5)
  1. VIGABATRIN [Suspect]
     Active Substance: VIGABATRIN
     Indication: Epilepsy
     Dosage: FREQUENCY : TWICE A DAY;?
     Route: 048
  2. CLOBAZAM [Concomitant]
     Active Substance: CLOBAZAM
  3. VITAMINS [Concomitant]
     Active Substance: VITAMINS
  4. MOMMYS BLISS PROBIOTIC [Concomitant]
  5. EPIDIOLEX [Concomitant]
     Active Substance: CANNABIDIOL

REACTIONS (2)
  - Muscle spasms [None]
  - Therapeutic response decreased [None]
